FAERS Safety Report 5071071-7 (Version None)
Quarter: 2006Q3

REPORT INFORMATION
  Report Type: 
  Country: None (occurrence: None)
  Receive Date: 20060804
  Receipt Date: 20060125
  Transmission Date: 20061208
  Serious: No
  Sender: FDA-Public Use
  Company Number: US-GLAXOSMITHKLINE-A0590846A

PATIENT
  Age: 55 Year
  Sex: Male

DRUGS (1)
  1. NICORETTE [Suspect]
     Dates: start: 20060105, end: 20060116

REACTIONS (2)
  - HEART RATE IRREGULAR [None]
  - PALPITATIONS [None]
